FAERS Safety Report 4972858-9 (Version None)
Quarter: 2006Q2

REPORT INFORMATION
  Report Type: 
  Country: None (occurrence: None)
  Receive Date: 20060414
  Receipt Date: 20060407
  Transmission Date: 20061013
  Serious: Yes (Death)
  Sender: FDA-Public Use
  Company Number: FR-AVENTIS-200611328FR

PATIENT
  Age: 81 Year
  Sex: Male
  Weight: 70 kg

DRUGS (11)
  1. LOVENOX [Suspect]
     Route: 058
     Dates: end: 20060307
  2. TRIATEC [Suspect]
     Route: 048
  3. XATRAL [Suspect]
     Route: 048
  4. PRIMPERAN TAB [Suspect]
     Route: 048
     Dates: start: 20060303, end: 20060308
  5. CORDARONE [Suspect]
     Route: 048
  6. ATARAX [Suspect]
     Route: 048
  7. LYTOS [Concomitant]
  8. DUPHALAC [Concomitant]
  9. LANSOYL [Concomitant]
  10. XANAX [Concomitant]
     Route: 048
  11. DURAGESIC-100 [Concomitant]

REACTIONS (4)
  - AGRANULOCYTOSIS [None]
  - ANURIA [None]
  - SEPTIC SHOCK [None]
  - TACHYARRHYTHMIA [None]
